FAERS Safety Report 4496665-9 (Version None)
Quarter: 2004Q4

REPORT INFORMATION
  Report Type: 
  Country: None (occurrence: None)
  Receive Date: 20041108
  Receipt Date: 20041108
  Transmission Date: 20050328
  Serious: Yes (Disabling)
  Sender: FDA-Public Use
  Company Number: None

PATIENT
  Age: 40 Year
  Sex: Female
  Weight: 63.5036 kg

DRUGS (2)
  1. ZICAM    MATRIXX INC [Suspect]
     Indication: NASOPHARYNGITIS
     Dosage: 1 DOSE    SUMMER 03    NASAL
     Route: 045
  2. ZICAM       MATRIXX INC [Suspect]
     Dosage: 1 DOSE    MAY 04   NASAL
     Route: 045

REACTIONS (2)
  - AGEUSIA [None]
  - ANOSMIA [None]
